FAERS Safety Report 5085847-3 (Version None)
Quarter: 2006Q3

REPORT INFORMATION
  Report Type: 
  Country: None (occurrence: None)
  Receive Date: 20060817
  Receipt Date: 20060808
  Transmission Date: 20061208
  Serious: Yes (Hospitalization)
  Sender: FDA-Public Use
  Company Number: 2006-08-0604

PATIENT
  Sex: Male

DRUGS (2)
  1. PEG-INTRON [Suspect]
     Indication: HEPATITIS C
     Dates: start: 20030601, end: 20040501
  2. RIBAVIRIN [Suspect]
     Indication: HEPATITIS C
     Dosage: ORAL
     Route: 048
     Dates: start: 20030601, end: 20040501

REACTIONS (18)
  - ARTHRALGIA [None]
  - ASTHENIA [None]
  - DEPRESSION [None]
  - DIARRHOEA [None]
  - DIVERTICULITIS [None]
  - DYSURIA [None]
  - IMPAIRED HEALING [None]
  - INJECTION SITE ABSCESS [None]
  - LACERATION [None]
  - MIGRAINE [None]
  - MUSCULOSKELETAL PAIN [None]
  - MYALGIA [None]
  - NAUSEA [None]
  - NECK PAIN [None]
  - PAIN IN EXTREMITY [None]
  - PAINFUL DEFAECATION [None]
  - SCRATCH [None]
  - SKIN EXFOLIATION [None]
